FAERS Safety Report 8535658 (Version 2)
Quarter: 2012Q4

REPORT INFORMATION
  Report Type: Report from Study
  Country: IT (occurrence: IT)
  Receive Date: 20120430
  Receipt Date: 20120914
  Transmission Date: 20130627
  Serious: Yes (Hospitalization)
  Sender: FDA-Public Use
  Company Number: IT-JNJFOC-20120412446

PATIENT
  Age: 17 Year
  Sex: Male
  Weight: 50.1 kg

DRUGS (4)
  1. REMICADE [Suspect]
     Indication: CROHN^S DISEASE
     Route: 042
     Dates: start: 20110214
  2. PROTON PUMP INHIBITORS [Concomitant]
  3. ANTIBIOTICS [Concomitant]
     Indication: CROHN^S DISEASE
  4. PREDNISONE [Concomitant]

REACTIONS (1)
  - Colonic stenosis [Recovered/Resolved with Sequelae]
